FAERS Safety Report 4329835-0 (Version None)
Quarter: 2004Q1

REPORT INFORMATION
  Report Type: 
  Country: None (occurrence: None)
  Receive Date: 20040329
  Receipt Date: 20040315
  Transmission Date: 20041129
  Serious: Yes (Other)
  Sender: FDA-Public Use
  Company Number: JP-JNJFOC-20040304430

PATIENT
  Age: 40 Year
  Sex: Female

DRUGS (2)
  1. ITRACONAZOLE [Suspect]
     Indication: DRUG USE FOR UNKNOWN INDICATION
     Dosage: 200 MG, IN 1 DAY, ORAL
     Route: 048
     Dates: start: 20030306, end: 20030408
  2. ETHYL LOFLAZEPATE (ETHYL LOFLAZEPATE) [Concomitant]

REACTIONS (1)
  - ATRIOVENTRICULAR BLOCK [None]
